FAERS Safety Report 9849898 (Version 2)
Quarter: 2014Q1

REPORT INFORMATION
  Report Type: Spontaneous
  Country: DE (occurrence: DE)
  Receive Date: 20140128
  Receipt Date: 20140217
  Transmission Date: 20141002
  Serious: Yes (Other)
  Sender: FDA-Public Use
  Company Number: DE-PFIZER INC-2014022195

PATIENT
  Age: 49 Year
  Sex: Female

DRUGS (4)
  1. AROMASIN [Suspect]
     Indication: BREAST CANCER
     Dosage: 25 MG, 1X/DAY
     Dates: start: 2011
  2. TAMOXIFEN [Interacting]
     Indication: BREAST CANCER
     Dosage: UNK
     Dates: start: 2011
  3. LEVETIRACETAM [Concomitant]
     Indication: ANAPLASTIC ASTROCYTOMA
  4. TEMODAL [Concomitant]
     Indication: ANAPLASTIC ASTROCYTOMA

REACTIONS (4)
  - Uterine cancer [Unknown]
  - Drug interaction [Unknown]
  - Drug ineffective [Unknown]
  - Oestradiol increased [Unknown]
